FAERS Safety Report 14819559 (Version 12)
Quarter: 2023Q4

REPORT INFORMATION
  Report Type: Report from Study
  Country: JP (occurrence: JP)
  Receive Date: 20180427
  Receipt Date: 20231205
  Transmission Date: 20240109
  Serious: Yes (Hospitalization, Other)
  Sender: FDA-Public Use
  Company Number: JP-TAKEDA-2018TJP011081

PATIENT
  Age: 64 Year
  Sex: Male
  Weight: 59 kg

DRUGS (19)
  1. LEUPLIN [Suspect]
     Active Substance: LEUPROLIDE ACETATE
     Indication: Bulbospinal muscular atrophy congenital
     Dosage: 11.25 MILLIGRAM, Q3MONTHS
     Route: 058
     Dates: start: 20171101
  2. DAYVIGO [Concomitant]
     Active Substance: LEMBOREXANT
     Indication: Product used for unknown indication
     Dosage: 5 MILLIGRAM
     Route: 065
     Dates: start: 20230907
  3. VIBEGRON [Concomitant]
     Active Substance: VIBEGRON
     Indication: Product used for unknown indication
     Dosage: 50 MILLIGRAM
     Route: 065
     Dates: start: 20230913
  4. VONOPRAZAN FUMARATE [Concomitant]
     Active Substance: VONOPRAZAN FUMARATE
     Indication: Gastrooesophageal reflux disease
     Dosage: 20 MILLIGRAM
     Route: 065
     Dates: start: 20171222, end: 20180123
  5. VONOPRAZAN FUMARATE [Concomitant]
     Active Substance: VONOPRAZAN FUMARATE
     Indication: Gastrooesophageal reflux disease
     Dosage: 10 MILLIGRAM
     Route: 065
     Dates: start: 20180124
  6. TEPRENONE [Concomitant]
     Active Substance: TEPRENONE
     Indication: Chronic gastritis
     Dosage: 150 MILLIGRAM
     Route: 065
     Dates: end: 20200605
  7. MOSAPRIDE CITRATE [Concomitant]
     Active Substance: MOSAPRIDE CITRATE
     Indication: Chronic gastritis
     Dosage: 15 MILLIGRAM
     Route: 065
  8. NEXIUM [Concomitant]
     Active Substance: ESOMEPRAZOLE MAGNESIUM
     Indication: Gastrooesophageal reflux disease
     Dosage: 20 MILLIGRAM
     Route: 065
     Dates: start: 20131218, end: 20171221
  9. TRAMCET [Concomitant]
     Active Substance: ACETAMINOPHEN\TRAMADOL
     Indication: Spinal compression fracture
     Dosage: 4 DOSAGE FORM
     Route: 065
     Dates: start: 20171101, end: 20180123
  10. TRAMCET [Concomitant]
     Active Substance: ACETAMINOPHEN\TRAMADOL
     Indication: Spinal compression fracture
     Dosage: 1 DOSAGE FORM
     Route: 065
     Dates: start: 20180827, end: 20200331
  11. TRAMCET [Concomitant]
     Active Substance: ACETAMINOPHEN\TRAMADOL
     Indication: Spinal compression fracture
     Dosage: 2 DOSAGE FORM
     Route: 065
     Dates: start: 20200401
  12. MAGNESIUM OXIDE [Concomitant]
     Active Substance: MAGNESIUM OXIDE
     Indication: Constipation
     Dosage: 990 MILLIGRAM
     Route: 065
     Dates: start: 20180606
  13. BENPROPERINE PHOSPHATE [Concomitant]
     Active Substance: BENPROPERINE PHOSPHATE
     Indication: Upper respiratory tract inflammation
     Dosage: 60 MILLIGRAM
     Route: 065
     Dates: start: 20190603, end: 20190616
  14. BENPROPERINE PHOSPHATE [Concomitant]
     Active Substance: BENPROPERINE PHOSPHATE
     Indication: Upper respiratory tract inflammation
     Dosage: 60 MILLIGRAM
     Route: 065
     Dates: start: 20190619, end: 20190702
  15. BENPROPERINE PHOSPHATE [Concomitant]
     Active Substance: BENPROPERINE PHOSPHATE
     Indication: Upper respiratory tract inflammation
     Dosage: 60 MILLIGRAM
     Route: 065
     Dates: start: 20190716, end: 20190814
  16. CARBOCISTEINE CO [Concomitant]
     Indication: Product used for unknown indication
     Dosage: 1500 MILLIGRAM
     Route: 065
     Dates: start: 20190531, end: 20190620
  17. CARBOCISTEINE CO [Concomitant]
     Indication: Product used for unknown indication
     Dosage: 1500 MILLIGRAM
     Route: 065
     Dates: start: 20190626
  18. ESFLURBIPROFEN\HERBALS [Concomitant]
     Active Substance: ESFLURBIPROFEN\HERBALS
     Indication: Osteoarthritis
     Dosage: 40 MILLIGRAM
     Route: 065
     Dates: start: 20190918, end: 20191008
  19. REBAMIPIDE NS [Concomitant]
     Indication: Product used for unknown indication
     Dosage: 300 MILLIGRAM
     Route: 065
     Dates: start: 20200606

REACTIONS (7)
  - Organising pneumonia [Recovering/Resolving]
  - Spinal compression fracture [Recovering/Resolving]
  - Nasal cavity cancer [Unknown]
  - Pneumonia [Recovered/Resolved]
  - Hepatic steatosis [Recovering/Resolving]
  - Dyslipidaemia [Recovering/Resolving]
  - Bone density decreased [Not Recovered/Not Resolved]

NARRATIVE: CASE EVENT DATE: 20180411
